FAERS Safety Report 23111575 (Version 1)
Quarter: 2023Q4

REPORT INFORMATION
  Report Type: Spontaneous
  Country: JP (occurrence: JP)
  Receive Date: 20231026
  Receipt Date: 20231026
  Transmission Date: 20240110
  Serious: Yes (Death)
  Sender: FDA-Public Use
  Company Number: JP-DSJP-DSJ-2023-143761

PATIENT
  Age: 4 Decade

DRUGS (1)
  1. VANFLYTA [Suspect]
     Active Substance: QUIZARTINIB DIHYDROCHLORIDE
     Indication: Product used for unknown indication
     Dosage: 35.4 MG, QD
     Route: 048
     Dates: start: 20230927, end: 20231010

REACTIONS (1)
  - Shock [Fatal]

NARRATIVE: CASE EVENT DATE: 20231001
